FAERS Safety Report 17963598 (Version 4)
Quarter: 2020Q3

REPORT INFORMATION
  Report Type: Report from Study
  Country: US (occurrence: US)
  Receive Date: 20200630
  Receipt Date: 20200727
  Transmission Date: 20201103
  Serious: Yes (Other)
  Sender: FDA-Public Use
  Company Number: US-JNJFOC-20200631933

PATIENT
  Age: 48 Year
  Sex: Female
  Weight: 102.1 kg

DRUGS (29)
  1. USTEKINUMAB [Suspect]
     Active Substance: USTEKINUMAB
     Indication: COLITIS ULCERATIVE
     Route: 042
     Dates: start: 20170213
  2. USTEKINUMAB [Suspect]
     Active Substance: USTEKINUMAB
     Route: 058
     Dates: start: 20170411
  3. INFLUENZA VACCINE [Concomitant]
     Active Substance: INFLUENZA VIRUS VACCINE
     Dosage: 1 ONCE (ONE TIME INTERVENTION
     Route: 030
     Dates: start: 201809, end: 201809
  4. TYLENOL WITH CODEIN                /00154101/ [Concomitant]
     Indication: TOOTH EXTRACTION
     Dosage: 300/30 MG, PRN (AS  NEEDED)
     Route: 048
     Dates: start: 20170918, end: 20170920
  5. NARATRIPTAN [Concomitant]
     Active Substance: NARATRIPTAN HYDROCHLORIDE
     Indication: MIGRAINE
     Dosage: PRN (AS NEEDED)
     Route: 048
     Dates: start: 2015
  6. ACETAMINOPHEN. [Concomitant]
     Active Substance: ACETAMINOPHEN
     Dosage: PRN (AS NEEDED)
     Route: 048
     Dates: start: 1997, end: 20171226
  7. KETOROLAC [Concomitant]
     Active Substance: KETOROLAC TROMETHAMINE
     Indication: HEADACHE
     Dosage: ONCE (ONE TIME INTERVENTION)
     Route: 042
     Dates: start: 20170206, end: 20170206
  8. SPIRONOLACTONE. [Concomitant]
     Active Substance: SPIRONOLACTONE
     Indication: HYPERTENSION
     Dosage: EVERY DAY
     Route: 048
     Dates: start: 20190116
  9. PROPOFOL. [Concomitant]
     Active Substance: PROPOFOL
     Indication: COLONOSCOPY
     Dosage: ONCE (ONE TIME INTERVENTION)
     Route: 042
     Dates: start: 20191105, end: 20191105
  10. PROPOFOL. [Concomitant]
     Active Substance: PROPOFOL
     Dosage: ONCE (ONE TIME INTERVENTION)
     Route: 042
     Dates: start: 20170410, end: 20170410
  11. LISINOPRIL. [Concomitant]
     Active Substance: LISINOPRIL
     Indication: HYPERTENSION
     Dosage: EVERY DAY
     Route: 048
     Dates: start: 20170628, end: 20170822
  12. ESTRADIOL. [Concomitant]
     Active Substance: ESTRADIOL
     Indication: MENOPAUSE
     Dosage: EVERY DAY
     Route: 048
     Dates: start: 2014
  13. MESALAMINE. [Concomitant]
     Active Substance: MESALAMINE
     Indication: COLITIS ULCERATIVE
     Dosage: 4 OTHER, PRN (AS?NEEDED)
     Route: 054
     Dates: start: 2012, end: 20170115
  14. MEDROXYPROGESTERONE [Concomitant]
     Active Substance: MEDROXYPROGESTERONE
     Indication: ARTIFICIAL MENOPAUSE
     Dosage: EVERY DAY
     Route: 048
     Dates: start: 20190116
  15. USTEKINUMAB [Suspect]
     Active Substance: USTEKINUMAB
     Route: 058
     Dates: start: 20200428
  16. PROPOFOL. [Concomitant]
     Active Substance: PROPOFOL
     Indication: ENDOSCOPY
     Dosage: ONCE (ONE TIME INTERVENTION)
     Route: 042
     Dates: start: 20170206, end: 20170206
  17. AMOXICILLIN. [Concomitant]
     Active Substance: AMOXICILLIN
     Indication: DENTAL CARE
     Route: 048
     Dates: start: 20180205, end: 20180208
  18. HCTZ [Concomitant]
     Active Substance: HYDROCHLOROTHIAZIDE
     Dosage: EVERY DAY
     Route: 048
     Dates: start: 20170823
  19. PROMETHAZINE [Concomitant]
     Active Substance: PROMETHAZINE HYDROCHLORIDE
     Indication: MIGRAINE
     Dosage: PRN (AS NEEDED)
     Route: 048
     Dates: start: 2015
  20. LIALDA [Concomitant]
     Active Substance: MESALAMINE
     Indication: COLITIS ULCERATIVE
     Dosage: EVERY DAY
     Route: 048
     Dates: start: 2015
  21. FLUOXETINE [Concomitant]
     Active Substance: FLUOXETINE HYDROCHLORIDE
     Indication: ANXIETY
     Dosage: EVERY DAY
     Route: 048
     Dates: start: 20190216
  22. POLYETHYLENE GLYCOL 3350. [Concomitant]
     Active Substance: POLYETHYLENE GLYCOL 3350
     Indication: COLONOSCOPY
     Dosage: ON TIME INTERVENTION
     Route: 048
     Dates: start: 20170205, end: 20170205
  23. CITALOPRAM [Concomitant]
     Active Substance: CITALOPRAM HYDROBROMIDE
     Indication: ANXIETY
     Dosage: EVERY DAY
     Route: 048
     Dates: start: 2015, end: 201709
  24. ACETAMINOPHEN. [Concomitant]
     Active Substance: ACETAMINOPHEN
     Dosage: PRN (AS NEEDED)
     Route: 048
     Dates: start: 2010
  25. AMOXICILLIN. [Concomitant]
     Active Substance: AMOXICILLIN
     Route: 048
     Dates: start: 20170918, end: 20170920
  26. FLUOXETINE [Concomitant]
     Active Substance: FLUOXETINE HYDROCHLORIDE
     Dosage: EVERY DAY
     Route: 048
     Dates: start: 20190116, end: 20190216
  27. HCTZ [Concomitant]
     Active Substance: HYDROCHLOROTHIAZIDE
     Indication: HYPERTENSION
     Dosage: EVERY DAY
     Route: 048
     Dates: start: 20170628
  28. INFLUENZA VACCINE [Concomitant]
     Active Substance: INFLUENZA VIRUS VACCINE
     Indication: ROUTINE HEALTH MAINTENANCE
     Dosage: 1 ONCE (ONE TIME INTERVENTION
     Route: 030
     Dates: start: 20170919, end: 20170919
  29. ACETAMINOPHEN. [Concomitant]
     Active Substance: ACETAMINOPHEN
     Indication: HEADACHE
     Dosage: PRN (AS NEEDED)
     Route: 048
     Dates: start: 20171223, end: 20171226

REACTIONS (1)
  - Cholecystitis acute [Recovered/Resolved]

NARRATIVE: CASE EVENT DATE: 20200614
